FAERS Safety Report 13110218 (Version 1)
Quarter: 2017Q1

REPORT INFORMATION
  Report Type: Spontaneous
  Country: US (occurrence: US)
  Receive Date: 20170112
  Receipt Date: 20170112
  Transmission Date: 20170428
  Serious: Yes (Hospitalization)
  Sender: FDA-Public Use
  Company Number: US-ROCHE-1100591

PATIENT
  Sex: Male

DRUGS (4)
  1. ACTIVASE [Suspect]
     Active Substance: ALTEPLASE
     Indication: MYOCARDIAL INFARCTION
     Route: 042
  2. COUMADIN [Concomitant]
     Active Substance: WARFARIN SODIUM
  3. NITROGLYCERIN. [Concomitant]
     Active Substance: NITROGLYCERIN
     Route: 041
  4. HEPARIN [Concomitant]
     Active Substance: HEPARIN SODIUM

REACTIONS (1)
  - Chest wall haematoma [Recovering/Resolving]
